FAERS Safety Report 5526555-1 (Version None)
Quarter: 2007Q4

REPORT INFORMATION
  Report Type: 
  Country: None (occurrence: None)
  Receive Date: 20071127
  Receipt Date: 20071114
  Transmission Date: 20080405
  Serious: Yes (Hospitalization)
  Sender: FDA-Public Use
  Company Number: DE-ELI_LILLY_AND_COMPANY-DE200709004048

PATIENT
  Sex: Male
  Weight: 75 kg

DRUGS (8)
  1. GEMZAR [Suspect]
     Indication: NON-SMALL CELL LUNG CANCER
     Dosage: 1877.5 MG, UNKNOWN
     Route: 065
     Dates: start: 20070522, end: 20070731
  2. CORTISONE ACETATE [Concomitant]
     Indication: PULMONARY FIBROSIS
     Dosage: UNK, UNKNOWN
     Route: 065
     Dates: start: 20070501
  3. NEXIUM [Concomitant]
     Dosage: 40 MG, EACH EVENING
  4. SANDOCAL-D [Concomitant]
     Dosage: 1 EACH MORNING
  5. METALGIN [Concomitant]
     Dosage: 500 MG, EACH EVENING OR WHEN NECESSARY
  6. URBASON /00049601/ [Concomitant]
     Dosage: 48 MG, EACH MORNING
  7. OXYGEN [Concomitant]
     Dosage: 2 LITER/MIN FLOW 18H/D
  8. CARBOPLATIN [Concomitant]
     Dosage: UNK, UNKNOWN
     Dates: start: 20070525, end: 20070731

REACTIONS (2)
  - ALVEOLITIS ALLERGIC [None]
  - RESPIRATORY FAILURE [None]
